FAERS Safety Report 19201012 (Version 1)
Quarter: 2021Q2

REPORT INFORMATION
  Report Type: Spontaneous
  Country: US (occurrence: US)
  Receive Date: 20210430
  Receipt Date: 20210430
  Transmission Date: 20210717
  Serious: Yes (Other)
  Sender: FDA-Public Use
  Company Number: None

PATIENT
  Age: 33 Year
  Sex: Male
  Weight: 183 kg

DRUGS (1)
  1. DEXMEDETOMIDINE. [Suspect]
     Active Substance: DEXMEDETOMIDINE
     Indication: MECHANICAL VENTILATION
     Dosage: ?          OTHER FREQUENCY:CONTINUOUS DRIP;?
     Route: 041

REACTIONS (4)
  - Hypertension [None]
  - Hyperthermia [None]
  - Infusion related reaction [None]
  - Body temperature increased [None]

NARRATIVE: CASE EVENT DATE: 20210418
